FAERS Safety Report 9389066 (Version 1)
Quarter: 2013Q3

REPORT INFORMATION
  Report Type: Report from Study
  Country: US (occurrence: US)
  Receive Date: 20130708
  Receipt Date: 20130708
  Transmission Date: 20140515
  Serious: Yes (Other)
  Sender: FDA-Public Use
  Company Number: PHEH2013US014365

PATIENT
  Age: 38 Year
  Sex: Female

DRUGS (1)
  1. GLEEVEC [Suspect]
     Indication: CHRONIC MYELOID LEUKAEMIA
     Dosage: 400 MG, DAILY
     Route: 048
     Dates: start: 200911

REACTIONS (5)
  - Road traffic accident [Unknown]
  - Fall [Unknown]
  - Intervertebral disc protrusion [Unknown]
  - Hypoaesthesia [Unknown]
  - Neck pain [Unknown]
